FAERS Safety Report 22198323 (Version 2)
Quarter: 2023Q2

REPORT INFORMATION
  Report Type: Spontaneous
  Country: US (occurrence: None)
  Receive Date: 20230411
  Receipt Date: 20230502
  Transmission Date: 20230721
  Serious: No
  Sender: FDA-Public Use
  Company Number: 2023A068158

PATIENT
  Sex: Female

DRUGS (1)
  1. SYMBICORT [Suspect]
     Active Substance: BUDESONIDE\FORMOTEROL FUMARATE DIHYDRATE
     Dosage: DOSE AND FREQUENCY ARE UNKNOWN UNKNOWN
     Route: 055

REACTIONS (5)
  - Lip blister [Unknown]
  - Lip pain [Unknown]
  - Lip swelling [Unknown]
  - Injury associated with device [Unknown]
  - Device safety feature issue [Unknown]
